FAERS Safety Report 21943938 (Version 1)
Quarter: 2023Q1

REPORT INFORMATION
  Report Type: Other
  Country: None (occurrence: JP)
  Receive Date: 20230202
  Receipt Date: 20230202
  Transmission Date: 20230417
  Serious: Yes (Hospitalization, Other)
  Sender: FDA-Public Use
  Company Number: JP-Spectra Medical Devices, LLC-2137391

PATIENT
  Age: 83 Year
  Sex: Female

DRUGS (6)
  1. LIDOCAINE HYDROCHLORIDE ANHYDROUS [Suspect]
     Active Substance: LIDOCAINE HYDROCHLORIDE ANHYDROUS
     Indication: Spinal anaesthesia
     Route: 065
  2. DEXMEDETOMIDINE [Suspect]
     Active Substance: DEXMEDETOMIDINE
     Route: 065
  3. EPINEPHRINE [Concomitant]
     Active Substance: EPINEPHRINE
     Route: 065
  4. AMLODIPINE [Concomitant]
     Active Substance: AMLODIPINE BESYLATE
     Route: 065
  5. FENTANYL [Concomitant]
     Active Substance: FENTANYL
     Route: 065
  6. BUPIVACAINE [Concomitant]
     Active Substance: BUPIVACAINE
     Route: 065

REACTIONS (1)
  - Atrioventricular block complete [Recovered/Resolved]
